FAERS Safety Report 25462396 (Version 1)
Quarter: 2025Q2

REPORT INFORMATION
  Report Type: Report from Study
  Country: CR (occurrence: CR)
  Receive Date: 20250620
  Receipt Date: 20250620
  Transmission Date: 20250717
  Serious: Yes (Disabling)
  Sender: NOVARTIS
  Company Number: CR-002147023-NVSC2025CR098760

PATIENT
  Sex: Female

DRUGS (1)
  1. EXFORGE [Suspect]
     Active Substance: AMLODIPINE BESYLATE\VALSARTAN
     Indication: Hypertension
     Dosage: 5/320 MG, QD
     Route: 048

REACTIONS (1)
  - Inflammation [Recovering/Resolving]
